FAERS Safety Report 7481251-9 (Version None)
Quarter: 2011Q2

REPORT INFORMATION
  Report Type: 
  Country: None (occurrence: None)
  Receive Date: 20110512
  Receipt Date: 20110512
  Transmission Date: 20111010
  Serious: No
  Sender: FDA-Public Use
  Company Number: None

PATIENT
  Age: 58 Year
  Sex: Female
  Weight: 49.8957 kg

DRUGS (1)
  1. SEROQUEL XR [Suspect]
     Indication: DEPRESSION
     Dosage: 300MG ONCE DAILY BY MOUTH  MARCH - FEB 11
     Route: 048

REACTIONS (3)
  - SUICIDAL IDEATION [None]
  - NIGHTMARE [None]
  - SOMNOLENCE [None]
